FAERS Safety Report 24879057 (Version 2)
Quarter: 2025Q1

REPORT INFORMATION
  Report Type: Report from Study
  Country: CA (occurrence: CA)
  Receive Date: 20250123
  Receipt Date: 20250226
  Transmission Date: 20250409
  Serious: Yes (Other)
  Sender: HLS THERAPEUTICS
  Company Number: CA-HLS-202500060

PATIENT
  Age: 44 Year
  Sex: Male

DRUGS (1)
  1. CLOZARIL [Suspect]
     Active Substance: CLOZAPINE
     Indication: Product used for unknown indication
     Route: 048
     Dates: start: 20241225, end: 20250124

REACTIONS (11)
  - Extrasystoles [Unknown]
  - Neutrophil count increased [Unknown]
  - Chest pain [Unknown]
  - Dysuria [Unknown]
  - Dizziness [Not Recovered/Not Resolved]
  - Feeling hot [Unknown]
  - C-reactive protein increased [Unknown]
  - Urinary incontinence [Unknown]
  - Lymphocyte count decreased [Unknown]
  - Dyspnoea exertional [Unknown]
  - White blood cell count increased [Unknown]

NARRATIVE: CASE EVENT DATE: 20250115
